FAERS Safety Report 24828377 (Version 5)
Quarter: 2025Q3

REPORT INFORMATION
  Report Type: Spontaneous
  Country: US (occurrence: US)
  Receive Date: 20250109
  Receipt Date: 20250816
  Transmission Date: 20251021
  Serious: Yes (Hospitalization, Other)
  Sender: ALEXION PHARMACEUTICALS
  Company Number: US-AstraZeneca-CH-00780571A

PATIENT
  Sex: Male

DRUGS (5)
  1. TEZSPIRE [Suspect]
     Active Substance: TEZEPELUMAB-EKKO
     Route: 065
  2. TEZSPIRE [Suspect]
     Active Substance: TEZEPELUMAB-EKKO
  3. REPATHA [Suspect]
     Active Substance: EVOLOCUMAB
     Route: 065
  4. GABAPENTIN [Concomitant]
     Active Substance: GABAPENTIN
  5. IBUPROFEN [Suspect]
     Active Substance: IBUPROFEN

REACTIONS (10)
  - Pain [Unknown]
  - Paralysis [Unknown]
  - Disability [Unknown]
  - Pneumonitis [Recovered/Resolved]
  - Paralysis [Unknown]
  - Blood triglycerides abnormal [Unknown]
  - Movement disorder [Unknown]
  - Intervertebral disc protrusion [Unknown]
  - Blood cholesterol abnormal [Unknown]
  - Product use issue [Unknown]
